FAERS Safety Report 5393316-6 (Version None)
Quarter: 2007Q3

REPORT INFORMATION
  Report Type: 
  Country: None (occurrence: None)
  Receive Date: 20070723
  Receipt Date: 20070712
  Transmission Date: 20080115
  Serious: Yes (Hospitalization, Other)
  Sender: FDA-Public Use
  Company Number: PHFR2007GB01495

PATIENT
  Age: 54 Year
  Sex: Male

DRUGS (2)
  1. METRONIDAZOLE [Concomitant]
  2. CLOZARIL [Suspect]
     Indication: SCHIZOPHRENIA
     Route: 048
     Dates: start: 20020815, end: 20070429

REACTIONS (10)
  - ABDOMINAL INFECTION [None]
  - BLOOD ALBUMIN DECREASED [None]
  - CATABOLIC STATE [None]
  - ILEUS [None]
  - INTESTINAL FUNCTIONAL DISORDER [None]
  - LAPAROTOMY [None]
  - LIFE SUPPORT [None]
  - MALAISE [None]
  - SEPSIS [None]
  - TOOTH EXTRACTION [None]
